FAERS Safety Report 6365734-0 (Version None)
Quarter: 2009Q3

REPORT INFORMATION
  Report Type: 
  Country: None (occurrence: None)
  Receive Date: 20090919
  Receipt Date: 20090824
  Transmission Date: 20100115
  Serious: No
  Sender: FDA-Public Use
  Company Number: US-ABBOTT-09P-163-0593121-00

PATIENT
  Sex: Male
  Weight: 67.192 kg

DRUGS (2)
  1. HUMIRA [Suspect]
     Indication: PSORIASIS
     Dates: start: 20081111
  2. HUMIRA [Suspect]

REACTIONS (3)
  - NASOPHARYNGITIS [None]
  - RASH PRURITIC [None]
  - URTICARIA [None]
